FAERS Safety Report 20860633 (Version 1)
Quarter: 2022Q2

REPORT INFORMATION
  Report Type: Spontaneous
  Country: US (occurrence: US)
  Receive Date: 20220523
  Receipt Date: 20220523
  Transmission Date: 20220721
  Serious: No
  Sender: FDA-Public Use
  Company Number: US-BRISTOL-MYERS SQUIBB COMPANY-2022-038561

PATIENT
  Age: 69 Year
  Sex: Female
  Weight: 86.182 kg

DRUGS (1)
  1. ORENCIA [Suspect]
     Active Substance: ABATACEPT
     Indication: Rheumatoid arthritis
     Dosage: DOSE : 1;     FREQ : ONCE A WEEK
     Route: 058

REACTIONS (2)
  - Device malfunction [Unknown]
  - Product storage error [Unknown]

NARRATIVE: CASE EVENT DATE: 20220501
